FAERS Safety Report 6934562-7 (Version None)
Quarter: 2010Q3

REPORT INFORMATION
  Report Type: 
  Country: None (occurrence: None)
  Receive Date: 20100820
  Receipt Date: 20100804
  Transmission Date: 20110219
  Serious: No
  Sender: FDA-Public Use
  Company Number: US-ROXANE LABORATORIES, INC.-2010-RO-00983RO

PATIENT
  Age: 61 Year
  Sex: Male

DRUGS (4)
  1. PREDNISONE [Suspect]
     Indication: HERPES ZOSTER
     Dosage: 50 MG
     Route: 048
  2. PREDNISONE [Suspect]
     Dosage: 20 MG
     Route: 048
  3. PREDNISONE [Suspect]
     Dosage: 10 MG
     Route: 048
  4. ACYCLOVIR [Concomitant]
     Indication: HERPES ZOSTER

REACTIONS (2)
  - ATRIAL FIBRILLATION [None]
  - THROMBOSIS [None]
